FAERS Safety Report 19012733 (Version 5)
Quarter: 2021Q3

REPORT INFORMATION
  Report Type: Report from Study
  Country: US (occurrence: US)
  Receive Date: 20210316
  Receipt Date: 20210715
  Transmission Date: 20211014
  Serious: Yes (Other)
  Sender: FDA-Public Use
  Company Number: US-KYOWAKIRIN-2021BKK003981

PATIENT

DRUGS (4)
  1. CRYSVITA [Suspect]
     Active Substance: BUROSUMAB-TWZA
     Indication: OSTEOMALACIA
     Dosage: 20 MG, 1X/4 WEEKS
     Route: 058
     Dates: start: 20210205, end: 20210219
  2. CRYSVITA [Suspect]
     Active Substance: BUROSUMAB-TWZA
     Dosage: 20 MG, 1X/4 WEEKS
     Route: 058
     Dates: start: 20210514
  3. CRYSVITA [Suspect]
     Active Substance: BUROSUMAB-TWZA
     Dosage: 20 MG, 1X/4 WEEKS
     Route: 058
     Dates: start: 2021, end: 2021
  4. CRYSVITA [Suspect]
     Active Substance: BUROSUMAB-TWZA
     Dosage: 20 MG, ONCE EVERY 4 WEEKS
     Route: 058
     Dates: start: 2021

REACTIONS (10)
  - Myalgia [Unknown]
  - Blood phosphorus decreased [Unknown]
  - Swelling face [Unknown]
  - Neck pain [Unknown]
  - Product use in unapproved indication [Not Recovered/Not Resolved]
  - Bone pain [Unknown]
  - Inappropriate schedule of product administration [Unknown]
  - Muscle spasms [Recovering/Resolving]
  - Muscle tightness [Unknown]
  - Fatigue [Unknown]

NARRATIVE: CASE EVENT DATE: 2021
